FAERS Safety Report 8742871 (Version 4)
Quarter: 2012Q4

REPORT INFORMATION
  Report Type: 
  Country: BR (occurrence: BR)
  Receive Date: 20120824
  Receipt Date: 20121204
  Transmission Date: 20130627
  Serious: Yes (Death, Hospitalization)
  Sender: FDA-Public Use
  Company Number: BR-B.I. PHARMACEUTICALS,INC./RIDGEFIELD-2012-BR-00960BR

PATIENT
  Age: 32 Year
  Sex: Female

DRUGS (10)
  1. PRADAXA [Suspect]
     Indication: CEREBROVASCULAR ACCIDENT PROPHYLAXIS
     Dosage: 300 mg
     Route: 048
     Dates: start: 201207, end: 20120724
  2. PRADAXA [Suspect]
     Indication: ATRIAL FIBRILLATION
  3. AMIODARONA [Concomitant]
     Dosage: 200 mg
  4. METOPROLOL [Concomitant]
     Dosage: 50 mg
  5. FUROSEMIDA [Concomitant]
     Dosage: 20 mg
  6. OMEPRAZOL [Concomitant]
     Dosage: 10 mg
  7. PURAN T4 [Concomitant]
     Dosage: 75 mg
  8. RIVOTRIL [Concomitant]
     Dosage: 1 mg
  9. PLASIL [Concomitant]
  10. ISORDIL [Concomitant]

REACTIONS (18)
  - Multi-organ failure [Fatal]
  - Sepsis [Fatal]
  - Pneumonia [Fatal]
  - Renal failure acute [Fatal]
  - Liver disorder [Fatal]
  - Respiratory tract infection [Not Recovered/Not Resolved]
  - Respiratory failure [Not Recovered/Not Resolved]
  - Septic shock [Not Recovered/Not Resolved]
  - Hepatic failure [Not Recovered/Not Resolved]
  - Drug-induced liver injury [Not Recovered/Not Resolved]
  - Cardiac failure congestive [Not Recovered/Not Resolved]
  - Hypotension [Not Recovered/Not Resolved]
  - Ischaemic hepatitis [Not Recovered/Not Resolved]
  - Cardiogenic shock [Not Recovered/Not Resolved]
  - Malaise [Not Recovered/Not Resolved]
  - Jaundice [Not Recovered/Not Resolved]
  - Hepatic steatosis [Not Recovered/Not Resolved]
  - Hepatomegaly [Not Recovered/Not Resolved]
